FAERS Safety Report 24949873 (Version 1)
Quarter: 2025Q1

REPORT INFORMATION
  Report Type: Spontaneous
  Country: US (occurrence: US)
  Receive Date: 20250210
  Receipt Date: 20250210
  Transmission Date: 20250408
  Serious: Yes (Other)
  Sender: SANOFI AVENTIS
  Company Number: US-SA-2025SA039183

PATIENT
  Age: 81 Year
  Sex: Male
  Weight: 84.55 kg

DRUGS (13)
  1. DUPIXENT [Suspect]
     Active Substance: DUPILUMAB
     Dosage: 300 MG, QOW
     Route: 058
  2. CODEINE\GUAIFENESIN [Concomitant]
     Active Substance: CODEINE\GUAIFENESIN
  3. DOXYCYCLINE HYCLATE [Concomitant]
     Active Substance: DOXYCYCLINE HYCLATE
  4. PREDNISONE [Concomitant]
     Active Substance: PREDNISONE
  5. VALACYCLOVIR [Concomitant]
     Active Substance: VALACYCLOVIR HYDROCHLORIDE
  6. PRAVASTATIN SODIUM [Concomitant]
     Active Substance: PRAVASTATIN SODIUM
  7. BREZTRI [Concomitant]
     Active Substance: BUDESONIDE\FORMOTEROL\GLYCOPYRROLATE
  8. SUCRALFATE [Concomitant]
     Active Substance: SUCRALFATE
  9. VALSARTAN [Concomitant]
     Active Substance: VALSARTAN
  10. NEBIVOLOL [Concomitant]
     Active Substance: NEBIVOLOL
  11. TAMSULOSIN [Concomitant]
     Active Substance: TAMSULOSIN
  12. FAMOTIDINE [Concomitant]
     Active Substance: FAMOTIDINE
  13. LEVOTHYROXINE SODIUM [Concomitant]
     Active Substance: LEVOTHYROXINE SODIUM

REACTIONS (1)
  - Pneumonia [Unknown]
